FAERS Safety Report 14270697 (Version 1)
Quarter: 2017Q4

REPORT INFORMATION
  Report Type: Spontaneous
  Country: US (occurrence: US)
  Receive Date: 20171211
  Receipt Date: 20171211
  Transmission Date: 20180321
  Serious: Yes (Death)
  Sender: FDA-Public Use
  Company Number: US-OTSUKA-KJ20040262

PATIENT
  Age: 32 Year
  Sex: Female
  Weight: 53.51 kg

DRUGS (1)
  1. ABILIFY [Suspect]
     Active Substance: ARIPIPRAZOLE
     Indication: FEELING OF DESPAIR
     Dosage: 15 MG, UNK
     Route: 048
     Dates: start: 20031021, end: 20031121

REACTIONS (1)
  - Arrhythmia [Fatal]

NARRATIVE: CASE EVENT DATE: 20031215
